FAERS Safety Report 8440616-9 (Version None)
Quarter: 2012Q2

REPORT INFORMATION
  Report Type: 
  Country: None (occurrence: None)
  Receive Date: 20120615
  Receipt Date: 20120605
  Transmission Date: 20120825
  Serious: No
  Sender: FDA-Public Use
  Company Number: US-TEVA-341849USA

PATIENT
  Sex: Female
  Weight: 65.83 kg

DRUGS (7)
  1. TRIMIPRAMINE MALEATE [Concomitant]
     Indication: DEPRESSION
  2. TRIMIPRAMINE MALEATE [Concomitant]
     Indication: ANXIETY
  3. CITALOPRAM HYDROBROMIDE [Concomitant]
     Indication: DEPRESSION
  4. ROSUVASTATIN [Concomitant]
     Indication: BLOOD CHOLESTEROL
  5. LAMOTRIGINE [Concomitant]
     Indication: DEPRESSION
  6. LORAZEPAM [Concomitant]
     Indication: DEPRESSION
  7. NUVIGIL [Suspect]
     Indication: DEPRESSION
     Dosage: 250 MILLIGRAM; QAM
     Route: 048
     Dates: start: 20101001

REACTIONS (2)
  - OFF LABEL USE [None]
  - DRUG INEFFECTIVE [None]
